FAERS Safety Report 5507674-2 (Version None)
Quarter: 2007Q4

REPORT INFORMATION
  Report Type: 
  Country: None (occurrence: None)
  Receive Date: 20071106
  Receipt Date: 20071031
  Transmission Date: 20080405
  Serious: Yes (Other)
  Sender: FDA-Public Use
  Company Number: A0690788A

PATIENT
  Sex: Female

DRUGS (2)
  1. ADVAIR DISKUS 100/50 [Suspect]
     Indication: ASTHMA
     Dosage: 1PUFF TWICE PER DAY
     Route: 055
     Dates: start: 20020101
  2. FLUTICASONE PROPIONATE [Concomitant]
     Dates: start: 20070901

REACTIONS (5)
  - COUGH [None]
  - DRUG INEFFECTIVE [None]
  - GLOSSODYNIA [None]
  - LOSS OF CONSCIOUSNESS [None]
  - ORAL MUCOSAL BLISTERING [None]
